FAERS Safety Report 5511066-X (Version None)
Quarter: 2007Q4

REPORT INFORMATION
  Report Type: 
  Country: None (occurrence: None)
  Receive Date: 20071107
  Receipt Date: 20071026
  Transmission Date: 20080405
  Serious: Yes (Disabling)
  Sender: FDA-Public Use
  Company Number: 100#03#2007-04370

PATIENT
  Age: 62 Year
  Sex: Male

DRUGS (3)
  1. SERTRALINE HCL [Suspect]
     Indication: MEMORY IMPAIRMENT
     Dosage: 50 MG ONCE DAILY
     Route: 048
     Dates: start: 20060113, end: 20060114
  2. SERTRALINE HCL [Suspect]
     Indication: SLEEP DISORDER
     Dosage: 50 MG ONCE DAILY
     Route: 048
     Dates: start: 20060113, end: 20060114
  3. CODEINE (CODEINE) (CODEINE) [Concomitant]

REACTIONS (9)
  - DIARRHOEA [None]
  - DRUG INEFFECTIVE [None]
  - EJACULATION DISORDER [None]
  - FALL [None]
  - GAIT DISTURBANCE [None]
  - GASTROOESOPHAGEAL REFLUX DISEASE [None]
  - HYPERSENSITIVITY [None]
  - MUSCLE SPASMS [None]
  - MUSCULOSKELETAL STIFFNESS [None]
